FAERS Safety Report 5676398-3 (Version None)
Quarter: 2008Q1

REPORT INFORMATION
  Report Type: 
  Country: None (occurrence: None)
  Receive Date: 20080321
  Receipt Date: 20080312
  Transmission Date: 20080703
  Serious: Yes (Other)
  Sender: FDA-Public Use
  Company Number: AU-PFIZER INC-2008023658

PATIENT
  Age: 55 Year
  Sex: Female

DRUGS (1)
  1. AROMASIN [Suspect]
     Route: 048

REACTIONS (3)
  - OEDEMA PERIPHERAL [None]
  - PAIN IN EXTREMITY [None]
  - VENOUS THROMBOSIS LIMB [None]
